FAERS Safety Report 9538036 (Version 1)
Quarter: 2013Q3

REPORT INFORMATION
  Report Type: Spontaneous
  Country: US (occurrence: US)
  Receive Date: 20130920
  Receipt Date: 20130920
  Transmission Date: 20140515
  Serious: Yes (Hospitalization, Other)
  Sender: FDA-Public Use
  Company Number: US-ASTRAZENECA-2013SE69424

PATIENT
  Age: 76 Year
  Sex: Female

DRUGS (8)
  1. ENTOCORT EC [Suspect]
     Indication: PRODUCT USED FOR UNKNOWN INDICATION
     Dosage: 3 MG THREE TIMES DAILY FOR FOUR WEEKS
     Route: 048
  2. ENTOCORT EC [Suspect]
     Indication: PRODUCT USED FOR UNKNOWN INDICATION
     Dosage: 3 MG TWO TIMES DAILY FOR TWO WEEKS
     Route: 048
  3. ZANTAC [Concomitant]
     Indication: PRODUCT USED FOR UNKNOWN INDICATION
     Route: 048
  4. BENADRYL [Concomitant]
     Indication: PRODUCT USED FOR UNKNOWN INDICATION
     Route: 048
  5. LEVOXYL [Concomitant]
     Indication: THYROID DISORDER
     Dosage: 100 MCG DAILY
     Route: 048
  6. LUMIGAN [Concomitant]
     Indication: OFF LABEL USE
     Dosage: 0.01% DAILY, OU BOTH EYES
     Route: 050
  7. EVISTA [Concomitant]
     Indication: PRODUCT USED FOR UNKNOWN INDICATION
     Route: 048
  8. ASACOL [Concomitant]

REACTIONS (8)
  - Neoplasm malignant [Unknown]
  - Diarrhoea [Unknown]
  - Weight decreased [Unknown]
  - Dehydration [Unknown]
  - Panic attack [Unknown]
  - Drug hypersensitivity [Unknown]
  - Rash generalised [Unknown]
  - Off label use [Unknown]
